FAERS Safety Report 6865042-5 (Version None)
Quarter: 2010Q3

REPORT INFORMATION
  Report Type: 
  Country: None (occurrence: None)
  Receive Date: 20100720
  Receipt Date: 20100705
  Transmission Date: 20110219
  Serious: Yes (Other)
  Sender: FDA-Public Use
  Company Number: CV20100340

PATIENT
  Age: 4 Year
  Sex: Male

DRUGS (6)
  1. PROPOFOL [Suspect]
     Indication: INDUCTION OF ANAESTHESIA
     Dosage: (4 MG/KG)
  2. ATRACURIUM (ATRACURIUM) (ATRACURIUM) [Concomitant]
  3. LEVOBUPIVACAINE (LEVOBUPIVACAINE) (LEVOBUPIVACAINE) [Concomitant]
  4. CLONIDINE [Concomitant]
  5. SEVOFLURANE (SEVOFLURANE) (SEVOFLURANE) [Concomitant]
  6. PARACETAMOL (PARACETAMOL) (PARACETAMOL) [Concomitant]

REACTIONS (3)
  - ISCHAEMIA [None]
  - PENILE VASCULAR DISORDER [None]
  - PROCEDURAL COMPLICATION [None]
